FAERS Safety Report 4543171-9 (Version None)
Quarter: 2004Q4

REPORT INFORMATION
  Report Type: 
  Country: None (occurrence: None)
  Receive Date: 20041229
  Receipt Date: 20041215
  Transmission Date: 20050328
  Serious: Yes (Hospitalization)
  Sender: FDA-Public Use
  Company Number: 2004SE06715

PATIENT
  Age: 80 Year
  Sex: Male

DRUGS (9)
  1. ROSUVASTATIN [Suspect]
     Indication: CARDIAC FAILURE
     Dates: start: 20040310, end: 20041203
  2. INHIBACE [Concomitant]
  3. DOXANORM [Concomitant]
  4. CORDARONE [Concomitant]
  5. FUROSEMIDE [Concomitant]
  6. VEROSPIRON [Concomitant]
  7. CORDARONE [Concomitant]
  8. MEDIGOX [Concomitant]
  9. POLOCARD [Concomitant]

REACTIONS (8)
  - ATRIAL FLUTTER [None]
  - BLOOD CREATININE INCREASED [None]
  - CARDIAC FAILURE [None]
  - CHEST PAIN [None]
  - CONDITION AGGRAVATED [None]
  - DYSPNOEA AT REST [None]
  - HYPERBILIRUBINAEMIA [None]
  - TRANSAMINASES INCREASED [None]
